FAERS Safety Report 21809662 (Version 1)
Quarter: 2023Q1

REPORT INFORMATION
  Report Type: Report from Study
  Country: US (occurrence: US)
  Receive Date: 20230103
  Receipt Date: 20230103
  Transmission Date: 20230417
  Serious: Yes (Other)
  Sender: FDA-Public Use
  Company Number: US-ABBVIE-4201196

PATIENT
  Sex: Male

DRUGS (2)
  1. HUMIRA [Suspect]
     Active Substance: ADALIMUMAB
     Indication: Psoriatic arthropathy
     Dosage: CF
     Route: 058
  2. Moderna [Concomitant]
     Indication: COVID-19 immunisation
     Dosage: COVID VACCINE 1 IN ONCE
     Route: 030

REACTIONS (4)
  - Medical device implantation [Unknown]
  - Pain in extremity [Recovering/Resolving]
  - Dysstasia [Not Recovered/Not Resolved]
  - Unevaluable event [Recovered/Resolved]
